FAERS Safety Report 23223342 (Version 1)
Quarter: 2023Q4

REPORT INFORMATION
  Report Type: Spontaneous
  Country: CA (occurrence: CA)
  Receive Date: 20231123
  Receipt Date: 20231123
  Transmission Date: 20240110
  Serious: Yes (Hospitalization, Other)
  Sender: FDA-Public Use
  Company Number: CA-CELLTRION INC.-2021CA018577

PATIENT

DRUGS (20)
  1. INFLECTRA [Suspect]
     Active Substance: INFLIXIMAB-DYYB
     Indication: Crohn^s disease
     Dosage: 10 MG/KG, 730 MG (73KG) AT 0,2,6 WEEKS THEN Q 8 WEEKS
     Route: 042
     Dates: start: 20220118
  2. INFLECTRA [Suspect]
     Active Substance: INFLIXIMAB-DYYB
     Dosage: 10 MG/KG, 730 MG (73KG) AT 0,2,6 WEEKS THEN Q 8 WEEKS
     Route: 042
     Dates: start: 20220131
  3. INFLECTRA [Suspect]
     Active Substance: INFLIXIMAB-DYYB
     Dosage: 10 MG/KG, 730 MG AT 0,2,6 WEEKS THEN Q 8 WEEKS
     Route: 042
     Dates: start: 20220301
  4. INFLECTRA [Suspect]
     Active Substance: INFLIXIMAB-DYYB
     Dosage: 10 MG/KG AT 0,2,6 WEEKS THEN Q 8 WEEKS
     Route: 042
     Dates: start: 20220426
  5. INFLECTRA [Suspect]
     Active Substance: INFLIXIMAB-DYYB
     Dosage: 10 MG/KG AT 0,2,6 WEEKS THEN Q 8 WEEKS
     Route: 042
     Dates: start: 20220623
  6. INFLECTRA [Suspect]
     Active Substance: INFLIXIMAB-DYYB
     Dosage: 10 MG/KG AT 0,2,6 WEEKS THEN Q 8 WEEKS
     Route: 042
     Dates: start: 20220822
  7. INFLECTRA [Suspect]
     Active Substance: INFLIXIMAB-DYYB
     Dosage: 10 MG/KG AT 0,2,6 WEEKS THEN Q 8 WEEKS
     Route: 042
     Dates: start: 20221017
  8. INFLECTRA [Suspect]
     Active Substance: INFLIXIMAB-DYYB
     Dosage: 10 MG/KG AT 0,2,6 WEEKS THEN Q 8 WEEKS
     Route: 042
     Dates: start: 20221212
  9. INFLECTRA [Suspect]
     Active Substance: INFLIXIMAB-DYYB
     Dosage: 10 MG/KG AT 0,2,6 WEEKS THEN Q 8 WEEKS
     Route: 042
     Dates: start: 20230206
  10. INFLECTRA [Suspect]
     Active Substance: INFLIXIMAB-DYYB
     Dosage: 770 MG, EVERY 8 WEEKS
     Route: 042
     Dates: start: 20230405
  11. INFLECTRA [Suspect]
     Active Substance: INFLIXIMAB-DYYB
     Dosage: 770 MG, EVERY 8 WEEKS
     Route: 042
     Dates: start: 20230405
  12. INFLECTRA [Suspect]
     Active Substance: INFLIXIMAB-DYYB
     Dosage: 770 (10 MG/KG), EVERY 8 WEEKS
     Route: 042
     Dates: start: 20230531
  13. INFLECTRA [Suspect]
     Active Substance: INFLIXIMAB-DYYB
     Dosage: 10 MG/KG, EVERY 8 WEEKS, ROUND UP TO THE NEAREST 100MG
     Route: 042
     Dates: start: 20230726
  14. INFLECTRA [Suspect]
     Active Substance: INFLIXIMAB-DYYB
     Dosage: 10 MG/KG, EVERY 8 WEEKS, ROUND UP TO THE NEAREST 100MG
     Route: 042
     Dates: start: 20230726
  15. INFLECTRA [Suspect]
     Active Substance: INFLIXIMAB-DYYB
     Dosage: 10 MG/KG (800MG), EVERY 8 WEEKS, ROUND UP TO THE NEAREST 100MG (800 MG Q8 WEEKS)
     Route: 042
     Dates: start: 20230920
  16. INFLECTRA [Suspect]
     Active Substance: INFLIXIMAB-DYYB
     Dosage: 10 MG/KG, EVERY 8 WEEKS, ROUND UP TO THE NEAREST 100MG
     Route: 042
  17. INFLECTRA [Suspect]
     Active Substance: INFLIXIMAB-DYYB
     Dosage: 10 MG/KG, EVERY 8 WEEKS, ROUND UP TO THE NEAREST 100MG(800 MG, 8 WEEKS)
     Route: 042
     Dates: start: 20231115
  18. ENTOCORT [Concomitant]
     Active Substance: BUDESONIDE
     Dosage: UNK
  19. ENTYVIO [Concomitant]
     Active Substance: VEDOLIZUMAB
     Dosage: UNK
  20. URSODIOL [Concomitant]
     Active Substance: URSODIOL
     Dosage: UNK

REACTIONS (17)
  - Pericarditis [Recovering/Resolving]
  - COVID-19 [Recovering/Resolving]
  - COVID-19 [Unknown]
  - Asthenia [Unknown]
  - Defaecation urgency [Unknown]
  - Condition aggravated [Not Recovered/Not Resolved]
  - Pollakiuria [Not Recovered/Not Resolved]
  - Nocturia [Not Recovered/Not Resolved]
  - Cough [Unknown]
  - Insomnia [Unknown]
  - Gastroenteritis viral [Unknown]
  - Influenza [Recovered/Resolved]
  - Vomiting [Recovered/Resolved]
  - Abdominal discomfort [Not Recovered/Not Resolved]
  - Micturition urgency [Not Recovered/Not Resolved]
  - Micturition disorder [Not Recovered/Not Resolved]
  - Off label use [Unknown]

NARRATIVE: CASE EVENT DATE: 20220101
